FAERS Safety Report 4535387-2 (Version None)
Quarter: 2004Q4

REPORT INFORMATION
  Report Type: 
  Country: None (occurrence: None)
  Receive Date: 20041214
  Receipt Date: 20040908
  Transmission Date: 20050328
  Serious: No
  Sender: FDA-Public Use
  Company Number: 2004234566US

PATIENT
  Age: 35 Year
  Sex: Female
  Weight: 59 kg

DRUGS (3)
  1. BEXTRA [Suspect]
     Indication: INTERVERTEBRAL DISC PROTRUSION
     Dosage: 20 MG, BID, ORAL
     Route: 048
     Dates: start: 20040701
  2. MULTIVITAMIN [Concomitant]
  3. CALCIUM GLUCONATE [Concomitant]

REACTIONS (2)
  - LIP PAIN [None]
  - STOMATITIS [None]
